FAERS Safety Report 23971653 (Version 1)
Quarter: 2024Q2

REPORT INFORMATION
  Report Type: Spontaneous
  Country: ES (occurrence: ES)
  Receive Date: 20240613
  Receipt Date: 20240613
  Transmission Date: 20240716
  Serious: Yes (Death, Other)
  Sender: FDA-Public Use
  Company Number: ES-ROCHE-3424070

PATIENT
  Age: 67 Year
  Sex: Male
  Weight: 75.6 kg

DRUGS (19)
  1. CARBOPLATIN [Suspect]
     Active Substance: CARBOPLATIN
     Indication: Small cell lung cancer extensive stage
     Dosage: 662 MG, EVERY 3 WEEKS
     Route: 042
     Dates: start: 20220420
  2. CARBOPLATIN [Suspect]
     Active Substance: CARBOPLATIN
     Dosage: 698 MG, EVERY 3 WEEKS
     Route: 042
     Dates: start: 20220627
  3. LURBINECTEDIN [Suspect]
     Active Substance: LURBINECTEDIN
     Indication: Small cell lung cancer extensive stage
     Dosage: 6.1 MG, EVERY 3 WEEKS
     Route: 042
     Dates: start: 20220720
  4. LURBINECTEDIN [Suspect]
     Active Substance: LURBINECTEDIN
     Dosage: 6.1 MG, EVERY 3 WEEKS
     Route: 042
     Dates: start: 20221220
  5. ETOPOSIDE [Suspect]
     Active Substance: ETOPOSIDE
     Indication: Small cell lung cancer extensive stage
     Dosage: 197 MG
     Route: 065
     Dates: start: 20220420
  6. ETOPOSIDE [Suspect]
     Active Substance: ETOPOSIDE
     Dosage: 19 MG
     Route: 065
     Dates: start: 20220629, end: 20220629
  7. HYDROCHLOROTHIAZIDE [Concomitant]
     Active Substance: HYDROCHLOROTHIAZIDE
     Indication: Hypertension
     Dosage: UNK
  8. ONDANSETRON [Concomitant]
     Active Substance: ONDANSETRON
     Dosage: UNK
     Dates: start: 20221123, end: 20221123
  9. ONDANSETRON [Concomitant]
     Active Substance: ONDANSETRON
     Dosage: UNK
     Dates: start: 20221220, end: 20221220
  10. ATEZOLIZUMAB [Concomitant]
     Active Substance: ATEZOLIZUMAB
     Indication: Small cell lung cancer extensive stage
     Dosage: 1200 MG, EVERY 3 WEEKS
     Dates: start: 20220420
  11. ATEZOLIZUMAB [Concomitant]
     Active Substance: ATEZOLIZUMAB
     Dosage: 1200 MG, EVERY 3 WEEKS
     Dates: start: 20221220
  12. AMILORIDE [Concomitant]
     Active Substance: AMILORIDE
     Indication: Hypertension
     Dosage: UNK
  13. SILDENAFIL [Concomitant]
     Active Substance: SILDENAFIL
     Indication: Erectile dysfunction
     Dosage: UNK
     Dates: start: 20191119
  14. METOCLOPRAMIDE [Concomitant]
     Active Substance: METOCLOPRAMIDE
     Indication: Nausea
     Dosage: UNK
     Dates: start: 20221222, end: 20230131
  15. TADALAFIL [Concomitant]
     Active Substance: TADALAFIL
     Indication: Erectile dysfunction
     Dosage: UNK
     Dates: start: 20191119
  16. LEXXEMA [Concomitant]
     Indication: Erythema
     Dosage: UNK
     Dates: start: 20221123, end: 20221214
  17. DEXAMETHASONE [Concomitant]
     Active Substance: DEXAMETHASONE
     Dosage: 8 MG, 1X/DAY
     Dates: start: 20221220, end: 20221220
  18. DEXAMETHASONE [Concomitant]
     Active Substance: DEXAMETHASONE
     Dosage: 8 MG, 1X/DAY
     Dates: start: 20221123, end: 20221123
  19. ACETAMINOPHEN [Concomitant]
     Active Substance: ACETAMINOPHEN
     Indication: Nausea
     Dosage: UNK
     Dates: start: 20221222, end: 20221229

REACTIONS (2)
  - Death [Fatal]
  - Infusion site reaction [Recovered/Resolved]

NARRATIVE: CASE EVENT DATE: 20221221
